FAERS Safety Report 24218430 (Version 2)
Quarter: 2024Q3

REPORT INFORMATION
  Report Type: Report from Study
  Country: IE (occurrence: IE)
  Receive Date: 20240816
  Receipt Date: 20240823
  Transmission Date: 20241017
  Serious: Yes (Hospitalization)
  Sender: BAXTER
  Company Number: IE-BAXTER-2023BAX020607

PATIENT
  Age: 63 Year
  Sex: Male
  Weight: 109 kg

DRUGS (24)
  1. WATER FOR INJECTION [Suspect]
     Active Substance: WATER
     Indication: Medication dilution
     Dosage: UNSPECIFIED DOSE AND 23 HOURS
     Route: 042
     Dates: start: 20230428
  2. SODIUM CHLORIDE [Suspect]
     Active Substance: SODIUM CHLORIDE
     Indication: Medication dilution
     Dosage: UNSPECIFIED DOSE AND 23 HOURS
     Route: 042
     Dates: start: 20230428
  3. CITRATE [Suspect]
     Active Substance: CITRIC ACID MONOHYDRATE
     Dosage: (CITRATE BUFFER PH 6.5-7.5), 23 HOURS
     Route: 042
     Dates: start: 20230428
  4. FLUCLOXACILLIN [Suspect]
     Active Substance: FLUCLOXACILLIN
     Indication: Osteomyelitis
     Dosage: 8 G, 23 HOURS, (MAH: IBIGEN SRL (BOWMED))
     Route: 042
     Dates: start: 20230428
  5. FLUCLOXACILLIN [Suspect]
     Active Substance: FLUCLOXACILLIN
     Indication: Diabetic foot
     Dosage: 12 G
     Route: 042
     Dates: start: 20240726, end: 20240804
  6. PANTOPRAZOLE [Concomitant]
     Active Substance: PANTOPRAZOLE
     Dosage: 40 MG, ONCE DAILY
     Route: 065
  7. AMLODIPINE [Concomitant]
     Active Substance: AMLODIPINE BESYLATE
     Dosage: 5 MG, ONCE DAILY
     Route: 065
  8. METFORMIN [Concomitant]
     Active Substance: METFORMIN HYDROCHLORIDE
     Dosage: 500 MG, ONCE DAILY
     Route: 065
  9. METFORMIN [Concomitant]
     Active Substance: METFORMIN HYDROCHLORIDE
     Dosage: 1G, ONCE DAILY
     Route: 065
  10. SERTRALINE [Concomitant]
     Active Substance: SERTRALINE HYDROCHLORIDE
     Dosage: 150 MCG, ONCE DAILY
     Route: 065
  11. BISOPROLOL [Concomitant]
     Active Substance: BISOPROLOL\BISOPROLOL FUMARATE
     Dosage: 1.25 MG, ONCE DAILY
     Route: 065
  12. BISOPROLOL [Concomitant]
     Active Substance: BISOPROLOL\BISOPROLOL FUMARATE
     Dosage: 2.5 MG, ONCE DAILY
     Route: 065
  13. CLOPIDOGREL [Concomitant]
     Active Substance: CLOPIDOGREL BISULFATE
     Dosage: 75 MG, ONCE DAILY
     Route: 065
  14. FUROSEMIDE [Concomitant]
     Active Substance: FUROSEMIDE
     Dosage: 40 MG, ONCE DAILY
     Route: 065
  15. FUROSEMIDE [Concomitant]
     Active Substance: FUROSEMIDE
     Dosage: 20 MG, ONCE DAILY
     Route: 065
  16. ATORVASTATIN [Concomitant]
     Active Substance: ATORVASTATIN
     Dosage: 80 MG, ONCE DAILY
     Route: 065
  17. EPLERENONE [Concomitant]
     Active Substance: EPLERENONE
     Dosage: 12.5 MG, ONCE DAILY
     Route: 065
  18. NOVORAPID [Concomitant]
     Active Substance: INSULIN ASPART
     Dosage: 10 IU SC PUSH TDS
     Route: 065
  19. RAMIPRIL [Concomitant]
     Active Substance: RAMIPRIL
     Dosage: 5 MG  ONCE DAILY
     Route: 065
  20. JENTADUETO [Concomitant]
     Active Substance: LINAGLIPTIN\METFORMIN HYDROCHLORIDE
     Dosage: 2.5 MG TWICE A DAY
     Route: 065
  21. EMPAGLIFLOZIN [Concomitant]
     Active Substance: EMPAGLIFLOZIN
     Dosage: 25 MG ONCE DAILY
     Route: 065
  22. OZEMPIC [Concomitant]
     Active Substance: SEMAGLUTIDE
     Dosage: 1 MG SURECLICK PEN ONCE WEEKLY
     Route: 065
  23. TOUJEO [Concomitant]
     Active Substance: INSULIN GLARGINE
     Dosage: 1 MG ONCE DAILY
     Route: 065
  24. UNSPECIFIED INGREDIENT [Suspect]
     Active Substance: UNSPECIFIED INGREDIENT
     Route: 065

REACTIONS (9)
  - C-reactive protein increased [Recovering/Resolving]
  - White blood cell count increased [Recovering/Resolving]
  - Diarrhoea [Recovering/Resolving]
  - Malaise [Recovering/Resolving]
  - Catheter site pain [Not Recovered/Not Resolved]
  - Wound secretion [Not Recovered/Not Resolved]
  - Hypersensitivity [Not Recovered/Not Resolved]
  - Catheter site irritation [Not Recovered/Not Resolved]
  - Catheter site erythema [Not Recovered/Not Resolved]

NARRATIVE: CASE EVENT DATE: 20230428
